FAERS Safety Report 9279065 (Version 3)
Quarter: 2013Q4

REPORT INFORMATION
  Report Type: Report from Study
  Country: BR (occurrence: BR)
  Receive Date: 20130508
  Receipt Date: 20131216
  Transmission Date: 20140711
  Serious: Yes (Death, Hospitalization, Other)
  Sender: FDA-Public Use
  Company Number: BR-BAYER-2013-054408

PATIENT
  Age: 69 Year
  Sex: Male
  Weight: 76 kg

DRUGS (5)
  1. NEXAVAR [Suspect]
     Indication: HEPATIC CANCER
     Dosage: 400 MG, BID
     Route: 048
     Dates: start: 201303, end: 2013
  2. NEXAVAR [Suspect]
     Indication: HEPATIC CANCER
     Dosage: 800 MG, BID
     Route: 048
     Dates: start: 201305, end: 201308
  3. DIPYRONE [Concomitant]
     Indication: FLATULENCE
     Dosage: 500 MG, PRN
     Route: 048
     Dates: start: 2012
  4. INSULIN [Concomitant]
     Indication: DIABETES MELLITUS
     Dosage: UNK UNK, BID
     Route: 058
     Dates: start: 2008
  5. LOSARTAN [Concomitant]
     Indication: HYPERTENSION
     Dosage: 1 DF, QD
     Route: 048
     Dates: start: 2012

REACTIONS (18)
  - Diarrhoea [Not Recovered/Not Resolved]
  - Flatulence [Not Recovered/Not Resolved]
  - Abdominal pain [Not Recovered/Not Resolved]
  - Functional gastrointestinal disorder [Not Recovered/Not Resolved]
  - Abdominal pain [Not Recovered/Not Resolved]
  - Constipation [Not Recovered/Not Resolved]
  - Decreased appetite [Not Recovered/Not Resolved]
  - Weight decreased [Not Recovered/Not Resolved]
  - Asthenia [Not Recovered/Not Resolved]
  - Ascites [Not Recovered/Not Resolved]
  - Diarrhoea [Not Recovered/Not Resolved]
  - Biliary colic [Not Recovered/Not Resolved]
  - Upper gastrointestinal haemorrhage [Fatal]
  - Haematemesis [Fatal]
  - Hepatocellular injury [Fatal]
  - Multi-organ failure [Fatal]
  - Renal failure acute [Fatal]
  - Septic shock [Fatal]
